FAERS Safety Report 16047387 (Version 2)
Quarter: 2019Q2

REPORT INFORMATION
  Report Type: Spontaneous
  Country: JP (occurrence: JP)
  Receive Date: 20190307
  Receipt Date: 20190402
  Transmission Date: 20190711
  Serious: Yes (Other)
  Sender: FDA-Public Use
  Company Number: JP-AMGEN-JPNSP2019037125

PATIENT
  Age: 84 Year
  Sex: Female

DRUGS (1)
  1. PRALIA [Suspect]
     Active Substance: DENOSUMAB
     Indication: OSTEOPOROSIS
     Dosage: 60 MILLIGRAM, Q6MO
     Route: 058
     Dates: start: 201807

REACTIONS (3)
  - Wound infection [Not Recovered/Not Resolved]
  - Eczema [Not Recovered/Not Resolved]
  - Impaired healing [Not Recovered/Not Resolved]
